FAERS Safety Report 24914423 (Version 1)
Quarter: 2025Q1

REPORT INFORMATION
  Report Type: Spontaneous
  Country: CN (occurrence: CN)
  Receive Date: 20250203
  Receipt Date: 20250203
  Transmission Date: 20250409
  Serious: Yes (Death, Other)
  Sender: Teyro Labs
  Company Number: CN-TEYRO-2025-TY-000068

PATIENT

DRUGS (3)
  1. CARBOPLATIN [Suspect]
     Active Substance: CARBOPLATIN
     Indication: Small cell lung cancer
     Route: 042
  2. ETOPOSIDE [Suspect]
     Active Substance: ETOPOSIDE
     Indication: Small cell lung cancer
     Route: 065
  3. PLACEBO [Suspect]
     Active Substance: PLACEBO
     Indication: Small cell lung cancer
     Route: 042

REACTIONS (2)
  - Ventricular fibrillation [Fatal]
  - Off label use [Unknown]
